FAERS Safety Report 4886076-6 (Version None)
Quarter: 2006Q1

REPORT INFORMATION
  Report Type: 
  Country: None (occurrence: None)
  Receive Date: 20060120
  Receipt Date: 20060111
  Transmission Date: 20060701
  Serious: Yes (Other)
  Sender: FDA-Public Use
  Company Number: AR-AVENTIS-200610266EU

PATIENT
  Age: 30 Year
  Sex: Female

DRUGS (3)
  1. ENOXAPARIN [Suspect]
     Indication: ANTIPHOSPHOLIPID SYNDROME
     Route: 058
  2. ASPIRIN [Concomitant]
  3. FOLIC ACID [Concomitant]

REACTIONS (2)
  - ABORTION SPONTANEOUS [None]
  - DRUG EXPOSURE DURING PREGNANCY [None]
